FAERS Safety Report 5396121-X (Version None)
Quarter: 2007Q3

REPORT INFORMATION
  Report Type: 
  Country: None (occurrence: None)
  Receive Date: 20070718
  Receipt Date: 20061103
  Transmission Date: 20080115
  Serious: Yes (Other)
  Sender: FDA-Public Use
  Company Number: 2006136730

PATIENT
  Sex: Female

DRUGS (1)
  1. CELEBREX [Suspect]
     Indication: BACK PAIN
     Dosage: (400 MG)
     Dates: start: 20060901, end: 20060901

REACTIONS (4)
  - HYPERSENSITIVITY [None]
  - PRURITUS [None]
  - SKIN DISORDER [None]
  - URTICARIA [None]
